FAERS Safety Report 7710515-6 (Version None)
Quarter: 2011Q3

REPORT INFORMATION
  Report Type: 
  Country: None (occurrence: None)
  Receive Date: 20110825
  Receipt Date: 20110818
  Transmission Date: 20111222
  Serious: Yes (Other)
  Sender: FDA-Public Use
  Company Number: US-PFIZER INC-2007036138

PATIENT
  Sex: Female

DRUGS (2)
  1. NEURONTIN [Suspect]
     Indication: NEURALGIA
     Dosage: UNK
     Dates: start: 20020101
  2. NEURONTIN [Suspect]
     Dosage: 600 MG, 3X/DAY

REACTIONS (9)
  - DEPRESSION [None]
  - BLOOD CHOLESTEROL INCREASED [None]
  - SUICIDAL IDEATION [None]
  - MICTURITION DISORDER [None]
  - DRUG INEFFECTIVE FOR UNAPPROVED INDICATION [None]
  - VIOLENCE-RELATED SYMPTOM [None]
  - SUICIDE ATTEMPT [None]
  - CARDIAC FAILURE CONGESTIVE [None]
  - OVERDOSE [None]
